FAERS Safety Report 15155821 (Version 1)
Quarter: 2018Q3

REPORT INFORMATION
  Report Type: Spontaneous
  Country: DE (occurrence: DE)
  Receive Date: 20180717
  Receipt Date: 20180717
  Transmission Date: 20181010
  Serious: Yes (Other)
  Sender: FDA-Public Use
  Company Number: DE-US WORLDMEDS, LLC-STA_00018102

PATIENT
  Sex: Female
  Weight: 52 kg

DRUGS (12)
  1. L?THYROX 25 [Concomitant]
  2. MADOPAR LT [Concomitant]
     Active Substance: BENSERAZIDE HYDROCHLORIDE\LEVODOPA
     Indication: PARKINSON^S DISEASE
     Dosage: + AS NECESSARY
  3. DILTIAZEM 90MG [Concomitant]
  4. DACEPTON [Suspect]
     Active Substance: APOMORPHINE HYDROCHLORIDE
     Dosage: 109.5 MG DAILY FROM 07.00 AM UNTIL 09.30 PM
     Route: 058
  5. LEVODOPA 100 RET [Concomitant]
     Indication: PARKINSON^S DISEASE
  6. VIT. B 12 [Concomitant]
     Route: 058
  7. APOMORPHINE HYDROCHLORIDE [Suspect]
     Active Substance: APOMORPHINE HYDROCHLORIDE
     Indication: PARKINSON^S DISEASE
     Dosage: 6MG
     Route: 058
     Dates: start: 20151109
  8. VENLAFAXIN 75MG RET [Concomitant]
  9. SEROQUEL [Concomitant]
     Active Substance: QUETIAPINE FUMARATE
  10. SIFROL 1,57MG RET [Concomitant]
     Indication: PARKINSON^S DISEASE
  11. CARVEDILOL 12,5 ORAL [Concomitant]
  12. RESOLOR 2MG [Concomitant]

REACTIONS (4)
  - Injection site necrosis [Recovering/Resolving]
  - Hyperkinesia [Not Recovered/Not Resolved]
  - Injection site nodule [Not Recovered/Not Resolved]
  - Injection site erythema [Not Recovered/Not Resolved]
